FAERS Safety Report 23171969 (Version 1)
Quarter: 2023Q4

REPORT INFORMATION
  Report Type: Spontaneous
  Country: CA (occurrence: CA)
  Receive Date: 20231110
  Receipt Date: 20231110
  Transmission Date: 20240110
  Serious: Yes (Other)
  Sender: FDA-Public Use
  Company Number: CA-MYLANLABS-2023M1119909

PATIENT
  Age: 97 Year
  Sex: Male
  Weight: 76 kg

DRUGS (1)
  1. NITROGLYCERIN [Suspect]
     Active Substance: NITROGLYCERIN
     Indication: Coronary artery disease
     Dosage: 0.4 MILLIGRAM,BID (0.4 MILLIGRAM 1 EVERY 12 HOURS)
     Route: 062

REACTIONS (3)
  - Angina pectoris [Recovered/Resolved]
  - Hypertension [Recovered/Resolved]
  - Product substitution issue [Recovered/Resolved]
